FAERS Safety Report 6390157-8 (Version None)
Quarter: 2009Q4

REPORT INFORMATION
  Report Type: 
  Country: None (occurrence: None)
  Receive Date: 20091006
  Receipt Date: 20090925
  Transmission Date: 20100525
  Serious: Yes (Other)
  Sender: FDA-Public Use
  Company Number: US-PFIZER INC-2009275550

PATIENT
  Sex: Female

DRUGS (4)
  1. PROVERA [Suspect]
     Indication: HORMONE REPLACEMENT THERAPY
     Dosage: 2.5-10 MG, UNK
     Route: 048
     Dates: start: 19900701, end: 19990401
  2. PREMARIN [Suspect]
     Indication: HORMONE REPLACEMENT THERAPY
     Dosage: UNK
     Dates: start: 19900701, end: 19990401
  3. PREMPRO [Suspect]
     Indication: HORMONE REPLACEMENT THERAPY
     Dosage: UNK
     Dates: start: 19990401, end: 20010401
  4. SYNTHROID [Concomitant]
     Indication: THYROID DISORDER
     Dosage: 0.25 AND 0.275 ALTERNATIVELY
     Dates: start: 19500101

REACTIONS (1)
  - BREAST CANCER FEMALE [None]
